FAERS Safety Report 15301082 (Version 1)
Quarter: 2018Q3

REPORT INFORMATION
  Report Type: Spontaneous
  Country: DE (occurrence: DE)
  Receive Date: 20180821
  Receipt Date: 20180821
  Transmission Date: 20181010
  Serious: Yes (Death, Hospitalization, Other)
  Sender: FDA-Public Use
  Company Number: DE-CELGENEUS-DEU-20180805191

PATIENT
  Age: 68 Year
  Sex: Male
  Weight: 80 kg

DRUGS (6)
  1. NACL [Concomitant]
     Active Substance: SODIUM CHLORIDE
     Indication: PRODUCT USED FOR UNKNOWN INDICATION
     Route: 042
     Dates: start: 20180711
  2. GEMCITABINE HEXAL [Concomitant]
     Indication: PANCREATIC CARCINOMA
     Route: 042
     Dates: start: 20180711
  3. ONDANSETRON [Concomitant]
     Active Substance: ONDANSETRON
     Indication: PREMEDICATION
     Route: 042
     Dates: start: 20180711
  4. ABRAXANE [Suspect]
     Active Substance: PACLITAXEL
     Indication: PANCREATIC CARCINOMA
     Route: 041
     Dates: start: 20180711
  5. KCL [Concomitant]
     Active Substance: POTASSIUM CHLORIDE
     Indication: PRODUCT USED FOR UNKNOWN INDICATION
     Route: 042
  6. DEXAMETHASONE. [Concomitant]
     Active Substance: DEXAMETHASONE
     Indication: PREMEDICATION
     Route: 042
     Dates: start: 20180711

REACTIONS (4)
  - Circulatory collapse [Fatal]
  - Acute respiratory distress syndrome [Unknown]
  - Dyspnoea [Unknown]
  - Pulmonary oedema [Fatal]

NARRATIVE: CASE EVENT DATE: 20180711
